FAERS Safety Report 7361176-X (Version None)
Quarter: 2011Q1

REPORT INFORMATION
  Report Type: 
  Country: None (occurrence: None)
  Receive Date: 20110318
  Receipt Date: 20110303
  Transmission Date: 20110831
  Serious: Yes (Other)
  Sender: FDA-Public Use
  Company Number: PHHY2011US10899

PATIENT
  Sex: Male

DRUGS (5)
  1. GLEEVEC [Suspect]
     Indication: GASTRIC CANCER
     Dosage: 400 MG, QD
     Route: 048
     Dates: start: 20101215
  2. TRAZODONE HCL [Concomitant]
     Dosage: UNK
  3. KLONOPIN [Concomitant]
     Dosage: AT BED TIME
  4. ZOLOFT [Concomitant]
     Dosage: UNK
  5. CLONAZEPAM [Concomitant]
     Dosage: UNK

REACTIONS (6)
  - RASH [None]
  - ANXIETY [None]
  - DEPRESSION [None]
  - DIARRHOEA [None]
  - RASH PRURITIC [None]
  - HYPOCHONDRIASIS [None]
